FAERS Safety Report 5626666-6 (Version None)
Quarter: 2008Q1

REPORT INFORMATION
  Report Type: 
  Country: None (occurrence: None)
  Receive Date: 20080214
  Receipt Date: 20080211
  Transmission Date: 20080703
  Serious: No
  Sender: FDA-Public Use
  Company Number: US-BOEHRINGER INGELHEIM GMBH, GERMANY-2007-BP-26497BP

PATIENT

DRUGS (1)
  1. FLOMAX [Suspect]

REACTIONS (2)
  - DRUG TOLERANCE [None]
  - ERECTILE DYSFUNCTION [None]
